FAERS Safety Report 13058551 (Version 4)
Quarter: 2017Q2

REPORT INFORMATION
  Report Type: Report from Study
  Country: DE (occurrence: DE)
  Receive Date: 20161223
  Receipt Date: 20170519
  Transmission Date: 20170830
  Serious: Yes (Hospitalization)
  Sender: FDA-Public Use
  Company Number: DE-JNJFOC-20161215693

PATIENT
  Sex: Male
  Weight: 111 kg

DRUGS (6)
  1. SIMPONI [Suspect]
     Active Substance: GOLIMUMAB
     Indication: PSORIATIC ARTHROPATHY
     Route: 058
     Dates: start: 20160927
  2. CANDESARTAN CILEXETIL W/HYDROCHLOROTHIAZIDE [Concomitant]
     Active Substance: CANDESARTAN CILEXETIL\HYDROCHLOROTHIAZIDE
     Route: 065
     Dates: start: 1991
  3. CANDESARTAN CILEXETIL W/HYDROCHLOROTHIAZIDE [Concomitant]
     Active Substance: CANDESARTAN CILEXETIL\HYDROCHLOROTHIAZIDE
     Route: 065
     Dates: start: 1991
  4. SIMPONI [Suspect]
     Active Substance: GOLIMUMAB
     Indication: PSORIATIC ARTHROPATHY
     Route: 058
     Dates: start: 20160427
  5. METAMIZOLE [Concomitant]
     Active Substance: METAMIZOLE
     Route: 065
     Dates: start: 2016
  6. ALLOPURINOL. [Concomitant]
     Active Substance: ALLOPURINOL
     Route: 065
     Dates: start: 2006

REACTIONS (5)
  - Haemoptysis [Recovered/Resolved]
  - Hyponatraemia [Recovered/Resolved]
  - Gastroduodenitis [Recovered/Resolved]
  - Gastrooesophageal reflux disease [Recovering/Resolving]
  - Hepatic cirrhosis [Not Recovered/Not Resolved]

NARRATIVE: CASE EVENT DATE: 20160921
